FAERS Safety Report 6746825-9 (Version None)
Quarter: 2010Q2

REPORT INFORMATION
  Report Type: 
  Country: None (occurrence: None)
  Receive Date: 20100528
  Receipt Date: 20100201
  Transmission Date: 20101027
  Serious: No
  Sender: FDA-Public Use
  Company Number: A0842329A

PATIENT
  Age: 82 Year
  Sex: Female

DRUGS (7)
  1. VENTOLIN [Suspect]
     Indication: BRONCHOSPASM
     Dosage: 1PUFF FOUR TIMES PER DAY
     Route: 055
     Dates: start: 20100101
  2. LANOXIN [Concomitant]
  3. PRAVASTATIN [Concomitant]
  4. PRILOSEC [Concomitant]
  5. VITAMIN TAB [Concomitant]
  6. CALTRATE [Concomitant]
  7. ANTIBIOTIC [Concomitant]

REACTIONS (2)
  - GLOSSODYNIA [None]
  - SWOLLEN TONGUE [None]
